FAERS Safety Report 24860839 (Version 1)
Quarter: 2025Q1

REPORT INFORMATION
  Report Type: Report from Study
  Country: CA (occurrence: CA)
  Receive Date: 20250120
  Receipt Date: 20250120
  Transmission Date: 20250408
  Serious: Yes (Other)
  Sender: ABBVIE
  Company Number: CA-ABBVIE-6091730

PATIENT
  Age: 32 Year
  Sex: Male

DRUGS (1)
  1. RINVOQ [Suspect]
     Active Substance: UPADACITINIB
     Indication: Colitis ulcerative
     Dosage: DRUG END DATE 2024
     Route: 048
     Dates: start: 20240109

REACTIONS (1)
  - Proctocolectomy [Unknown]

NARRATIVE: CASE EVENT DATE: 20241213
